FAERS Safety Report 9494434 (Version 1)
Quarter: 2013Q3

REPORT INFORMATION
  Report Type: Spontaneous
  Country: US (occurrence: None)
  Receive Date: 20130830
  Receipt Date: 20130830
  Transmission Date: 20140515
  Serious: No
  Sender: FDA-Public Use
  Company Number: None

PATIENT
  Age: 60 Year
  Sex: Female
  Weight: 77.11 kg

DRUGS (8)
  1. HYDOCODONE\ ACETOMINAPHEN [Suspect]
     Indication: BACK PAIN
     Dosage: STRENGTH:  5/500?QUANTITY:  1?FREQUENCY:  TID?HOW:  ORAL?
     Route: 048
     Dates: start: 201306
  2. HYDOCODONE\ ACETOMINAPHEN [Suspect]
     Indication: COMPLEX REGIONAL PAIN SYNDROME
     Dosage: STRENGTH:  5/500?QUANTITY:  1?FREQUENCY:  TID?HOW:  ORAL?
     Route: 048
     Dates: start: 201306
  3. HYDOCODONE\ ACETOMINAPHEN [Suspect]
     Indication: CARPAL TUNNEL SYNDROME
     Dosage: STRENGTH:  5/500?QUANTITY:  1?FREQUENCY:  TID?HOW:  ORAL?
     Route: 048
     Dates: start: 201306
  4. FENTNAL PATCH [Concomitant]
  5. SYNTHROID [Concomitant]
  6. MOTRIN [Concomitant]
  7. TYLENOL [Concomitant]
  8. MULTIVITE [Concomitant]

REACTIONS (1)
  - Drug ineffective [None]
